FAERS Safety Report 10142529 (Version 1)
Quarter: 2014Q2

REPORT INFORMATION
  Report Type: Spontaneous
  Country: IT (occurrence: IT)
  Receive Date: 20140430
  Receipt Date: 20140430
  Transmission Date: 20141212
  Serious: Yes (Hospitalization)
  Sender: FDA-Public Use
  Company Number: IT-BRISTOL-MYERS SQUIBB COMPANY-20194189

PATIENT
  Age: 75 Year
  Sex: Male

DRUGS (6)
  1. ERBITUX [Suspect]
     Dosage: INTERRUPTED ON 28-JAN-2014 AND RESTARTED
     Route: 040
     Dates: start: 20140114
  2. CARBOPLATIN INJECTION [Suspect]
     Indication: NASAL SINUS CANCER
     Dosage: INTERRUPTED ON 28-JAN-2014 AND RESTARTED
     Route: 040
     Dates: start: 20140114
  3. CO-EFFERALGAN [Concomitant]
  4. PLASIL [Concomitant]
  5. MACROGOL 3350 + ELECTROLYTES [Concomitant]
  6. GRANISETRON [Concomitant]

REACTIONS (1)
  - Anaemia [Recovering/Resolving]
